FAERS Safety Report 6338485-6 (Version None)
Quarter: 2009Q3

REPORT INFORMATION
  Report Type: 
  Country: None (occurrence: None)
  Receive Date: 20090901
  Receipt Date: 20090824
  Transmission Date: 20100115
  Serious: Yes (Other)
  Sender: FDA-Public Use
  Company Number: GXKR2009GB09492

PATIENT
  Age: 13 Year
  Sex: Male
  Weight: 40 kg

DRUGS (7)
  1. CLONIDINE           (CLONIDINE HYDROCHLORIDE) UNKNOWN [Suspect]
     Indication: EPIDURAL ANAESTHESIA
     Dosage: 75 UG, ONCE/SINGLE, EPIDURAL ; 1 UG/KG, 0.3 MG/KG/H=12 ML/H, INFUSION
     Route: 008
  2. LEVOBUPIVACAINE      (LEVOBUPIVACAINE) [Suspect]
     Indication: EPIDURAL ANAESTHESIA
     Dosage: 10 ML (0.25%), ONCE/SINGLE, EPIDURAL ; 0.125%, 12 ML/H, INFUSION
     Route: 008
  3. CEFUROXIME [Concomitant]
  4. DEXAMETHASONE TAB [Concomitant]
  5. PARACETAMOL (PARACETAMOL) [Concomitant]
  6. FENTANYL-100 [Concomitant]
  7. ANESTHETICS, GENERAL (NO INGREDIENTS/SUBSTANCES) [Concomitant]

REACTIONS (3)
  - ANURIA [None]
  - EMOTIONAL DISTRESS [None]
  - PRIAPISM [None]
